FAERS Safety Report 6761784-0 (Version None)
Quarter: 2010Q2

REPORT INFORMATION
  Report Type: 
  Country: None (occurrence: None)
  Receive Date: 20100521
  Receipt Date: 20100415
  Transmission Date: 20101027
  Serious: Yes (Life-Threatening, Hospitalization, Other)
  Sender: FDA-Public Use
  Company Number: THYM-1001267

PATIENT
  Age: 10 Year
  Sex: Male
  Weight: 15 kg

DRUGS (6)
  1. THYMOGLOBULIN [Suspect]
     Indication: PROPHYLAXIS AGAINST GRAFT VERSUS HOST DISEASE
     Dosage: 3.75 MG/KG,QD, INTRAVENOUS
     Route: 042
     Dates: start: 20060308, end: 20060311
  2. THYMOGLOBULIN [Suspect]
  3. FLUDARABINE PHOSPHATE [Concomitant]
  4. CYCLOPHOSPHAMIDE [Concomitant]
  5. CYCLOSPORINE [Concomitant]
  6. METHOTREXATE [Concomitant]

REACTIONS (5)
  - ACUTE GRAFT VERSUS HOST DISEASE IN SKIN [None]
  - CHRONIC GRAFT VERSUS HOST DISEASE [None]
  - EPSTEIN-BARR VIRUS ASSOCIATED LYMPHOPROLIFERATIVE DISORDER [None]
  - HEPATOMEGALY [None]
  - SPLENOMEGALY [None]
